FAERS Safety Report 10369258 (Version 1)
Quarter: 2014Q1

REPORT INFORMATION
  Report Type: Spontaneous
  Country: US (occurrence: None)
  Receive Date: 20140306
  Receipt Date: 20140306
  Transmission Date: 20141002
  Serious: Yes (Hospitalization)
  Sender: FDA-Public Use
  Company Number: 163-21880-13031276

PATIENT
  Age: 65 Year
  Sex: Male
  Weight: 68.95 kg

DRUGS (10)
  1. REVLIMID (LENALIDOMIDE) (CAPSULES) [Suspect]
     Indication: PLASMA CELL MYELOMA
     Dosage: 10 MG, 21 IN 21 D, PO
     Route: 048
     Dates: start: 200903
  2. ACYCLOVIR (ACICLOVIR) (TABLETS) [Concomitant]
  3. ASPIRIN (ACETYLSALICYLIC ACID) (ENTERIC-COATED TALBET) [Concomitant]
  4. BACTRIM (UNKNOWN) [Concomitant]
  5. CALCIUM CITRATE (UNKNOWN) [Concomitant]
  6. FOLIC ACID (TABLETS) [Concomitant]
  7. LIPITOR (ATORVASTATIN) (TABLETS) [Concomitant]
  8. LYRICA (PREGABALIN) (CAPSULES) [Concomitant]
  9. MIRALAX (MACROGOL) (POWDER) [Concomitant]
  10. VITAMIN D (ERGOCALCIFEROL) (UNKNOWN) [Concomitant]

REACTIONS (1)
  - Pneumonia [None]
